FAERS Safety Report 11260823 (Version 1)
Quarter: 2015Q3

REPORT INFORMATION
  Report Type: Spontaneous
  Country: US (occurrence: US)
  Receive Date: 20150710
  Receipt Date: 20150710
  Transmission Date: 20151125
  Serious: No
  Sender: FDA-Public Use
  Company Number: CHPA2015US006426

PATIENT
  Age: 77 Year
  Sex: Female

DRUGS (1)
  1. VOLTAREN [Suspect]
     Active Substance: DICLOFENAC SODIUM
     Indication: BACK PAIN
     Dosage: 2 G, UNK
     Route: 061

REACTIONS (4)
  - Drug ineffective for unapproved indication [Unknown]
  - Mental impairment [Recovered/Resolved]
  - Drug administered at inappropriate site [Unknown]
  - Off label use [Unknown]
